FAERS Safety Report 15867150 (Version 10)
Quarter: 2022Q2

REPORT INFORMATION
  Report Type: Report from Study
  Country: AR (occurrence: AR)
  Receive Date: 20190125
  Receipt Date: 20220411
  Transmission Date: 20220721
  Serious: Yes (Hospitalization, Other)
  Sender: FDA-Public Use
  Company Number: PHHY2019AR013556

PATIENT
  Age: 5 Year
  Sex: Male

DRUGS (6)
  1. ILARIS [Suspect]
     Active Substance: CANAKINUMAB
     Indication: Still^s disease
     Dosage: 150 MG, QMO
     Route: 058
     Dates: start: 20180503
  2. ILARIS [Suspect]
     Active Substance: CANAKINUMAB
     Dosage: 4 MG/KG, QMO
     Route: 065
     Dates: start: 201806
  3. DELTISONE [Concomitant]
     Indication: Product used for unknown indication
     Dosage: UNK
     Route: 065
  4. METHOTREXATE [Concomitant]
     Active Substance: METHOTREXATE
     Indication: Product used for unknown indication
     Dosage: UNK
     Route: 065
  5. CALCIUM [Concomitant]
     Active Substance: CALCIUM
     Indication: Product used for unknown indication
     Dosage: UNK
     Route: 065
  6. OMEPRAZOLE [Concomitant]
     Active Substance: OMEPRAZOLE
     Indication: Product used for unknown indication
     Dosage: UNK
     Route: 065

REACTIONS (17)
  - Haemolytic uraemic syndrome [Recovering/Resolving]
  - Septic shock [Recovering/Resolving]
  - Systemic inflammatory response syndrome [Recovering/Resolving]
  - SARS-CoV-2 test positive [Unknown]
  - Pyrexia [Not Recovered/Not Resolved]
  - Rash [Unknown]
  - Gastritis [Recovered/Resolved]
  - Renal disorder [Recovered/Resolved]
  - Haemophagocytic lymphohistiocytosis [Recovered/Resolved]
  - Dehydration [Recovering/Resolving]
  - Gastroenteritis viral [Recovered/Resolved]
  - Vomiting [Recovered/Resolved]
  - Gastritis [Recovering/Resolving]
  - Vomiting [Unknown]
  - Gastroenteritis [Recovering/Resolving]
  - Diarrhoea [Recovering/Resolving]
  - Ill-defined disorder [Unknown]

NARRATIVE: CASE EVENT DATE: 20181219
